FAERS Safety Report 18601249 (Version 1)
Quarter: 2020Q4

REPORT INFORMATION
  Report Type: Spontaneous
  Country: US (occurrence: US)
  Receive Date: 20201210
  Receipt Date: 20201210
  Transmission Date: 20210114
  Serious: No
  Sender: FDA-Public Use
  Company Number: US-AMERICAN REGENT INC-2019002738

PATIENT
  Age: 87 Year
  Sex: Male

DRUGS (2)
  1. VENOFER [Suspect]
     Active Substance: IRON SUCROSE
     Indication: IRON DEFICIENCY
     Dosage: 300 MG IN 150 ML NORMAL SALINE
     Route: 065
     Dates: start: 20191129, end: 20191129
  2. VENOFER [Suspect]
     Active Substance: IRON SUCROSE
     Dosage: 300 MG IN 150 ML NORMAL SALINE
     Route: 065
     Dates: start: 20191203, end: 20191203

REACTIONS (4)
  - Back pain [Unknown]
  - Dysstasia [Unknown]
  - Product use in unapproved indication [Recovered/Resolved]
  - Muscle spasms [Unknown]

NARRATIVE: CASE EVENT DATE: 20191129
